FAERS Safety Report 4889687-7 (Version None)
Quarter: 2006Q1

REPORT INFORMATION
  Report Type: 
  Country: None (occurrence: None)
  Receive Date: 20060120
  Receipt Date: 20060106
  Transmission Date: 20060701
  Serious: Yes (Death)
  Sender: FDA-Public Use
  Company Number: 2006S1000183

PATIENT
  Age: 64 Year
  Sex: Female

DRUGS (8)
  1. CLOZAPINE [Suspect]
     Indication: SCHIZOPHRENIA
     Dosage: 100 MG; QAM; ORAL
     Route: 048
  2. LANSOPRAZOLE [Concomitant]
  3. ATENOLOL [Concomitant]
  4. ACETYLSALICYLIC ACID SRT [Concomitant]
  5. LORAZEPAM [Concomitant]
  6. NIFEDIPINE [Concomitant]
  7. GABAPENTIN [Concomitant]
  8. PAROXETINE HYDROCHLORIDE [Concomitant]

REACTIONS (1)
  - CARDIAC ARREST [None]
